FAERS Safety Report 18833664 (Version 1)
Quarter: 2021Q1

REPORT INFORMATION
  Report Type: Spontaneous
  Country: US (occurrence: US)
  Receive Date: 20210203
  Receipt Date: 20210203
  Transmission Date: 20210419
  Serious: No
  Sender: FDA-Public Use
  Company Number: US-CELGENEUS-USA-20210200146

PATIENT
  Age: 71 Year
  Sex: Female

DRUGS (10)
  1. REVLIMID [Suspect]
     Active Substance: LENALIDOMIDE
     Dosage: 10?5 MILLIGRAM
     Route: 048
     Dates: start: 201703
  2. IVIG [Concomitant]
     Active Substance: HUMAN IMMUNOGLOBULIN G
     Indication: PRODUCT USED FOR UNKNOWN INDICATION
     Route: 058
  3. REVLIMID [Suspect]
     Active Substance: LENALIDOMIDE
     Dosage: 2 MILLIGRAM
     Route: 048
     Dates: start: 202008
  4. REVLIMID [Suspect]
     Active Substance: LENALIDOMIDE
     Indication: PLASMA CELL MYELOMA
     Dosage: 25 MILLIGRAM
     Route: 048
     Dates: start: 201611
  5. MELATONIN [Concomitant]
     Active Substance: MELATONIN
     Indication: PRODUCT USED FOR UNKNOWN INDICATION
     Route: 048
  6. K?DUR [Concomitant]
     Active Substance: POTASSIUM CHLORIDE
     Indication: PRODUCT USED FOR UNKNOWN INDICATION
     Route: 048
  7. KYPROLIS [Concomitant]
     Active Substance: CARFILZOMIB
     Indication: PRODUCT USED FOR UNKNOWN INDICATION
     Route: 065
  8. BACTRIM DS [Concomitant]
     Active Substance: SULFAMETHOXAZOLE\TRIMETHOPRIM
     Indication: PRODUCT USED FOR UNKNOWN INDICATION
     Route: 048
  9. REVLIMID [Suspect]
     Active Substance: LENALIDOMIDE
     Dosage: 25?10 MILLIGRAM
     Route: 048
     Dates: start: 20180829
  10. REVLIMID [Suspect]
     Active Substance: LENALIDOMIDE
     Dosage: 10 MILLIGRAM
     Route: 048
     Dates: start: 202009

REACTIONS (2)
  - Red blood cell count decreased [Recovered/Resolved]
  - White blood cell count decreased [Recovered/Resolved]

NARRATIVE: CASE EVENT DATE: 20210101
